FAERS Safety Report 10402198 (Version 1)
Quarter: 2014Q3

REPORT INFORMATION
  Report Type: Spontaneous
  Country: US (occurrence: US)
  Receive Date: 20140822
  Receipt Date: 20140822
  Transmission Date: 20150326
  Serious: No
  Sender: FDA-Public Use
  Company Number: US-PFIZER INC-2014230543

PATIENT
  Age: 45 Year
  Sex: Male

DRUGS (4)
  1. VISTARIL [Suspect]
     Active Substance: HYDROXYZINE PAMOATE
     Dosage: UNK
  2. BUSPAR [Suspect]
     Active Substance: BUSPIRONE HYDROCHLORIDE
     Dosage: UNK
  3. LAMICTAL [Suspect]
     Active Substance: LAMOTRIGINE
     Dosage: UNK
  4. NICOTROL [Concomitant]
     Active Substance: NICOTINE
     Dosage: UNK

REACTIONS (1)
  - Drug hypersensitivity [Unknown]
